FAERS Safety Report 4519189-9 (Version None)
Quarter: 2004Q4

REPORT INFORMATION
  Report Type: 
  Country: None (occurrence: None)
  Receive Date: 20041201
  Receipt Date: 20041115
  Transmission Date: 20050328
  Serious: Yes (Hospitalization)
  Sender: FDA-Public Use
  Company Number: S04-FRA-07817-01

PATIENT
  Age: 68 Year
  Sex: Male
  Weight: 58 kg

DRUGS (2)
  1. SEROPRAM (CITALOPRAM) [Suspect]
     Dates: end: 20040702
  2. THERALENE (ALIMEMAZINE TARTRATE) [Suspect]
     Dates: start: 20040630, end: 20040702

REACTIONS (5)
  - CYTOLYTIC HEPATITIS [None]
  - CYTOMEGALOVIRUS ANTIBODY POSITIVE [None]
  - GENERAL PHYSICAL HEALTH DETERIORATION [None]
  - HEPATITIS CHOLESTATIC [None]
  - HERPES VIRUS INFECTION [None]
